FAERS Safety Report 8560060-3 (Version None)
Quarter: 2012Q3

REPORT INFORMATION
  Report Type: 
  Country: None (occurrence: None)
  Receive Date: 20120727
  Receipt Date: 20120727
  Transmission Date: 20120928
  Serious: No
  Sender: FDA-Public Use
  Company Number: None

PATIENT
  Sex: Female
  Weight: 67.1324 kg

DRUGS (1)
  1. CLONAZEPAM [Suspect]
     Indication: RESTLESS LEGS SYNDROME
     Dosage: 3 BEDTIME PO
     Route: 048
     Dates: start: 20120723, end: 20120723

REACTIONS (5)
  - INSOMNIA [None]
  - PRODUCT QUALITY ISSUE [None]
  - ARRHYTHMIA [None]
  - RESTLESS LEGS SYNDROME [None]
  - PRODUCT SUBSTITUTION ISSUE [None]
